FAERS Safety Report 24712095 (Version 3)
Quarter: 2024Q4

REPORT INFORMATION
  Report Type: Spontaneous
  Country: US (occurrence: US)
  Receive Date: 20241209
  Receipt Date: 20241223
  Transmission Date: 20250115
  Serious: No
  Sender: PFIZER
  Company Number: US-PFIZER INC-202400306675

PATIENT
  Age: 44 Year
  Sex: Male
  Weight: 59.41 kg

DRUGS (3)
  1. ADCETRIS [Suspect]
     Active Substance: BRENTUXIMAB VEDOTIN
     Dosage: 70 MG, CYCLIC (EVERY 4 WEEKS)
     Route: 042
  2. ADCETRIS [Suspect]
     Active Substance: BRENTUXIMAB VEDOTIN
     Dosage: 1.18MG/KG IV (INTRAVENOUS) Q (EVERY)4 WEEKS
     Route: 042
  3. ADCETRIS [Suspect]
     Active Substance: BRENTUXIMAB VEDOTIN
     Dosage: 70MG INFUSION, EVERY 4 WEEKS
     Dates: start: 202412

REACTIONS (2)
  - Off label use [Unknown]
  - Weight increased [Unknown]
